FAERS Safety Report 8780261 (Version 3)
Quarter: 2012Q4

REPORT INFORMATION
  Report Type: Spontaneous
  Country: US (occurrence: None)
  Receive Date: 20120829
  Receipt Date: 20120924
  Transmission Date: 20130627
  Serious: Yes (Hospitalization, Other)
  Sender: FDA-Public Use
  Company Number: ADR-2012-01586

PATIENT
  Sex: Female

DRUGS (3)
  1. BACLOFEN [Suspect]
     Indication: SPASTICITY
  2. MORPHINE [Concomitant]
  3. OXYCODONE [Concomitant]

REACTIONS (3)
  - Delirium [None]
  - Post procedural complication [None]
  - Device damage [None]
